FAERS Safety Report 7554452-9 (Version None)
Quarter: 2011Q2

REPORT INFORMATION
  Report Type: 
  Country: None (occurrence: None)
  Receive Date: 20110617
  Receipt Date: 20110607
  Transmission Date: 20111010
  Serious: Yes (Hospitalization)
  Sender: FDA-Public Use
  Company Number: A0919549A

PATIENT
  Age: 76 Year
  Sex: Male

DRUGS (9)
  1. ASPIRIN [Concomitant]
  2. WARFARIN SODIUM [Concomitant]
  3. SIMVASTATIN [Concomitant]
  4. METFORMIN HCL [Concomitant]
  5. ADVAIR DISKUS 100/50 [Suspect]
     Indication: ASTHMA
     Dosage: 2PUFF PER DAY
     Route: 055
     Dates: start: 20080301
  6. BYSTOLIC [Concomitant]
  7. ALLOPURINOL [Concomitant]
  8. PACERONE [Concomitant]
  9. LEVOTHYROXINE SODIUM [Concomitant]

REACTIONS (7)
  - DRY EYE [None]
  - VISION BLURRED [None]
  - CATARACT [None]
  - VISUAL ACUITY REDUCED [None]
  - LUNG DISORDER [None]
  - DRUG INEFFECTIVE [None]
  - NIGHT BLINDNESS [None]
